FAERS Safety Report 9773710 (Version 3)
Quarter: 2014Q2

REPORT INFORMATION
  Report Type: Spontaneous
  Country: GB (occurrence: None)
  Receive Date: 20131218
  Receipt Date: 20140424
  Transmission Date: 20141212
  Serious: Yes (Hospitalization, Other)
  Sender: FDA-Public Use
  Company Number: AXC-2013-000656

PATIENT
  Age: 40 Year
  Sex: Female

DRUGS (2)
  1. NITROGLYCERIN (NITROGLYCERIN) RECTAL OINTMENT [Suspect]
     Indication: ANAL FISSURE
     Dosage: 1 DF, HS SINGLE DOSE, RECTAL
     Route: 054
     Dates: start: 20131001, end: 20131001
  2. WELLWOMAN VITAMIN PILLS (VITAMIN SUPPLEMENT) [Concomitant]

REACTIONS (18)
  - Convulsion [None]
  - Paralysis [None]
  - Migraine with aura [None]
  - Hypotension [None]
  - Heart rate decreased [None]
  - Chest discomfort [None]
  - Palpitations [None]
  - Emotional distress [None]
  - Petit mal epilepsy [None]
  - Paraesthesia [None]
  - Headache [None]
  - Procedural pain [None]
  - Malaise [None]
  - Mobility decreased [None]
  - Feeling abnormal [None]
  - Middle insomnia [None]
  - Hypoaesthesia [None]
  - Aphasia [None]
